FAERS Safety Report 13698057 (Version 1)
Quarter: 2017Q2

REPORT INFORMATION
  Report Type: Spontaneous
  Country: US (occurrence: US)
  Receive Date: 20170628
  Receipt Date: 20170628
  Transmission Date: 20170830
  Serious: No
  Sender: FDA-Public Use
  Company Number: US-ENDO PHARMACEUTICALS INC-2017-003630

PATIENT
  Sex: Female
  Weight: 58.96 kg

DRUGS (1)
  1. OPANA ER [Suspect]
     Active Substance: OXYMORPHONE HYDROCHLORIDE
     Indication: PAIN
     Dosage: 40 MG, TID
     Route: 048

REACTIONS (7)
  - Inappropriate schedule of drug administration [Unknown]
  - Lacrimation increased [Recovered/Resolved]
  - Initial insomnia [Unknown]
  - Sneezing [Recovered/Resolved]
  - Yawning [Recovered/Resolved]
  - Choking sensation [Recovered/Resolved]
  - Somnolence [Not Recovered/Not Resolved]
